FAERS Safety Report 5939321-X (Version None)
Quarter: 2008Q4

REPORT INFORMATION
  Report Type: 
  Country: None (occurrence: None)
  Receive Date: 20081103
  Receipt Date: 20081022
  Transmission Date: 20090506
  Serious: Yes (Other)
  Sender: FDA-Public Use
  Company Number: DE-PFIZER INC-2008089600

PATIENT
  Sex: Female

DRUGS (1)
  1. LYRICA [Suspect]
     Route: 048
     Dates: start: 20081014

REACTIONS (3)
  - BLISTER [None]
  - HYPERSENSITIVITY [None]
  - VIRAL INFECTION [None]
